FAERS Safety Report 6712074-3 (Version None)
Quarter: 2010Q2

REPORT INFORMATION
  Report Type: 
  Country: None (occurrence: None)
  Receive Date: 20100505
  Receipt Date: 20100429
  Transmission Date: 20101027
  Serious: Yes (Hospitalization)
  Sender: FDA-Public Use
  Company Number: FR-ABBOTT-09P-056-0614331-00

PATIENT
  Sex: Female

DRUGS (1)
  1. LIPANTHYL [Suspect]
     Indication: HYPERTRIGLYCERIDAEMIA
     Route: 048
     Dates: start: 20090217

REACTIONS (1)
  - BLOOD TRIGLYCERIDES INCREASED [None]
